FAERS Safety Report 7141165-0 (Version None)
Quarter: 2010Q4

REPORT INFORMATION
  Report Type: 
  Country: None (occurrence: None)
  Receive Date: 20101122
  Receipt Date: 20101115
  Transmission Date: 20110411
  Serious: Yes (Hospitalization, Other)
  Sender: FDA-Public Use
  Company Number: 20097798

PATIENT
  Age: 68 Year
  Sex: Male
  Weight: 57 kg

DRUGS (3)
  1. BACLOFEN [Suspect]
     Indication: MUSCLE SPASTICITY
     Dosage: 600 MCG, DAILY, INTRATHECAL
     Route: 037
     Dates: start: 20091020
  2. LIORESAL [Concomitant]
  3. DEPAS [Concomitant]

REACTIONS (3)
  - DEVICE BREAKAGE [None]
  - IMPLANT SITE EFFUSION [None]
  - INTRACRANIAL HYPOTENSION [None]
